FAERS Safety Report 23911170 (Version 1)
Quarter: 2024Q2

REPORT INFORMATION
  Report Type: Spontaneous
  Country: US (occurrence: None)
  Receive Date: 20240528
  Receipt Date: 20240528
  Transmission Date: 20240715
  Serious: Yes (Hospitalization)
  Sender: FDA-Public Use
  Company Number: None

PATIENT
  Age: 71 Year
  Sex: Female

DRUGS (11)
  1. CYCLOSPORINE MODIFIED [Suspect]
     Active Substance: CYCLOSPORINE
     Indication: Immunodeficiency
     Dosage: FREQUENCY : TWICE A DAY;?
     Route: 048
     Dates: start: 20230204
  2. B12 [Concomitant]
  3. FERROUS SULFATE [Concomitant]
     Active Substance: FERROUS SULFATE
  4. FOSAMAX [Concomitant]
     Active Substance: ALENDRONATE SODIUM
  5. LANTUS SOLOS [Concomitant]
  6. MACRODANTI N [Concomitant]
  7. METFORMIN [Concomitant]
     Active Substance: METFORMIN HYDROCHLORIDE
  8. MYCOPHENOLATE MOFETIL [Concomitant]
     Active Substance: MYCOPHENOLATE MOFETIL
  9. INEORAL [Concomitant]
  10. PREDNISONE [Concomitant]
     Active Substance: PREDNISONE
  11. VITAMIN B12 [Concomitant]
     Active Substance: CYANOCOBALAMIN

REACTIONS (1)
  - Urinary tract infection [None]

NARRATIVE: CASE EVENT DATE: 20240512
